FAERS Safety Report 8758886 (Version 1)
Quarter: 2012Q4

REPORT INFORMATION
  Report Type: 
  Country: US (occurrence: US)
  Receive Date: 20120829
  Receipt Date: 20120829
  Transmission Date: 20130627
  Serious: Yes (Hospitalization)
  Sender: FDA-Public Use
  Company Number: PHEH2012US016436

PATIENT
  Age: 79 Year
  Sex: Female

DRUGS (2)
  1. AFINITOR [Suspect]
     Dosage: 5 mg, UNK
     Dates: start: 2009
  2. AFINITOR [Suspect]
     Dosage: 10 mg, UNK
     Dates: start: 201204

REACTIONS (5)
  - Pneumonia [Unknown]
  - Cyst [Unknown]
  - Alopecia [Unknown]
  - Nail disorder [Unknown]
  - Drug ineffective [Unknown]
